FAERS Safety Report 5236555-7 (Version None)
Quarter: 2007Q1

REPORT INFORMATION
  Report Type: 
  Country: None (occurrence: None)
  Receive Date: 20070208
  Receipt Date: 20070129
  Transmission Date: 20070707
  Serious: Yes (Other)
  Sender: FDA-Public Use
  Company Number: 163-20785-06101031

PATIENT
  Age: 75 Year
  Sex: Male
  Weight: 78.9259 kg

DRUGS (17)
  1. THALOMID [Suspect]
     Indication: MULTIPLE MYELOMA
     Dosage: 200 MG, 4 IN 1 D, ORAL; 200 MG, ORAL
     Route: 048
     Dates: start: 20000901, end: 20050901
  2. THALOMID [Suspect]
     Indication: MULTIPLE MYELOMA
     Dosage: 200 MG, 4 IN 1 D, ORAL; 200 MG, ORAL
     Route: 048
     Dates: start: 20000801
  3. THALOMID [Suspect]
     Indication: MULTIPLE MYELOMA
     Dosage: 200 MG, 4 IN 1 D, ORAL; 200 MG, ORAL
     Route: 048
     Dates: start: 20061201
  4. ZOMETA [Concomitant]
  5. AREDIA (GLICLAZIDE) [Concomitant]
  6. DIAZIDE (GLICLAZIDE) [Concomitant]
  7. QUININE SULFATE [Concomitant]
  8. ALLOPURINOL [Concomitant]
  9. K-DUR 10 [Concomitant]
  10. AMARYL [Concomitant]
  11. PAXIL [Concomitant]
  12. OVERTHE COUNTER STOOL SOFTENERS [Concomitant]
  13. LAXATIVES (LAXATIVES) [Concomitant]
  14. ADVIL [Concomitant]
  15. BACLOFEN [Concomitant]
  16. PREDNISONE TAB [Concomitant]
  17. MELPHALAN (MELPHALAN) [Concomitant]

REACTIONS (5)
  - HYPOAESTHESIA [None]
  - OSTEONECROSIS [None]
  - PARAESTHESIA [None]
  - STOMATITIS [None]
  - WHITE BLOOD CELL COUNT DECREASED [None]
